FAERS Safety Report 14167049 (Version 1)
Quarter: 2017Q4

REPORT INFORMATION
  Report Type: Report from Study
  Country: US (occurrence: US)
  Receive Date: 20171108
  Receipt Date: 20171108
  Transmission Date: 20180321
  Serious: Yes (Death)
  Sender: FDA-Public Use
  Company Number: US-UCBSA-2017044560

PATIENT
  Age: 71 Year
  Sex: Male

DRUGS (1)
  1. LACOSAMIDE. [Suspect]
     Active Substance: LACOSAMIDE
     Indication: SEIZURE
     Dosage: 150 MG
     Dates: end: 20171012

REACTIONS (1)
  - Death [Fatal]

NARRATIVE: CASE EVENT DATE: 20171012
